FAERS Safety Report 14619955 (Version 1)
Quarter: 2018Q1

REPORT INFORMATION
  Report Type: Spontaneous
  Country: US (occurrence: US)
  Receive Date: 20180309
  Receipt Date: 20180309
  Transmission Date: 20180509
  Serious: No
  Sender: FDA-Public Use
  Company Number: US-009507513-1803USA003003

PATIENT
  Age: 24 Year
  Sex: Female
  Weight: 74.83 kg

DRUGS (1)
  1. NUVARING [Suspect]
     Active Substance: ETHINYL ESTRADIOL\ETONOGESTREL
     Indication: CONTRACEPTION
     Dosage: STRENGTH: .015/.12 (UNITS UNSPECIFIED)
     Route: 067
     Dates: start: 201608

REACTIONS (2)
  - Medical device site discomfort [Not Recovered/Not Resolved]
  - Product quality issue [Unknown]

NARRATIVE: CASE EVENT DATE: 20180305
